FAERS Safety Report 4917280-6 (Version None)
Quarter: 2006Q1

REPORT INFORMATION
  Report Type: 
  Country: None (occurrence: None)
  Receive Date: 20060221
  Receipt Date: 20060206
  Transmission Date: 20060701
  Serious: Yes (Hospitalization)
  Sender: FDA-Public Use
  Company Number: US-AVENTIS-200611392US

PATIENT
  Age: 26 Year
  Sex: Female

DRUGS (3)
  1. KETEK [Suspect]
     Indication: SINUSITIS
     Route: 048
     Dates: start: 20060203, end: 20060203
  2. ACETAMINOPHEN [Concomitant]
     Dosage: DOSE: UNK
  3. NYQUIL [Concomitant]
     Dosage: DOSE: UNK

REACTIONS (13)
  - ASPARTATE AMINOTRANSFERASE INCREASED [None]
  - BRAIN OEDEMA [None]
  - COAGULOPATHY [None]
  - CONDITION AGGRAVATED [None]
  - DISSEMINATED INTRAVASCULAR COAGULATION [None]
  - HEPATIC ENCEPHALOPATHY [None]
  - HEPATIC FAILURE [None]
  - LEUKOCYTOSIS [None]
  - MENTAL STATUS CHANGES [None]
  - OEDEMA [None]
  - PROTHROMBIN TIME PROLONGED [None]
  - SINUSITIS [None]
  - WHITE BLOOD CELL COUNT INCREASED [None]
